FAERS Safety Report 6545644-6 (Version None)
Quarter: 2010Q1

REPORT INFORMATION
  Report Type: 
  Country: None (occurrence: None)
  Receive Date: 20100121
  Receipt Date: 20100112
  Transmission Date: 20100710
  Serious: Yes (Other)
  Sender: FDA-Public Use
  Company Number: GB-PFIZER INC-2007065052

PATIENT
  Age: 19 Year
  Sex: Male

DRUGS (3)
  1. METHYLPREDNISOLONE AND METHYLPREDNISOLONE ACETATE AND METHYLPREDNISOLO [Suspect]
     Indication: T-CELL LYMPHOMA STAGE IV
     Dosage: 1 G, CYCLICAL
  2. CISPLATIN [Suspect]
     Dosage: 100 MG/M2, CYCLICALLY
  3. GEMCITABINE [Suspect]
     Indication: T-CELL LYMPHOMA STAGE IV
     Dosage: 1000 MG/M2, CYCLICALLY

REACTIONS (1)
  - NEUTROPENIA [None]
